FAERS Safety Report 16718330 (Version 3)
Quarter: 2019Q3

REPORT INFORMATION
  Report Type: Report from Study
  Country: US (occurrence: US)
  Receive Date: 20190820
  Receipt Date: 20190903
  Transmission Date: 20191005
  Serious: No
  Sender: FDA-Public Use
  Company Number: PHEH2019US034241

PATIENT
  Sex: Male

DRUGS (1)
  1. COSENTYX [Suspect]
     Active Substance: SECUKINUMAB
     Indication: PSORIASIS
     Dosage: 300 MG, QMO (Q4W)
     Route: 058
     Dates: start: 20190711

REACTIONS (6)
  - Macule [Unknown]
  - Rhinorrhoea [Not Recovered/Not Resolved]
  - Therapeutic product effect incomplete [Unknown]
  - Skin lesion [Unknown]
  - Productive cough [Not Recovered/Not Resolved]
  - Arthralgia [Not Recovered/Not Resolved]
